FAERS Safety Report 24996763 (Version 3)
Quarter: 2025Q4

REPORT INFORMATION
  Report Type: Spontaneous
  Country: EU (occurrence: EU)
  Receive Date: 20250221
  Receipt Date: 20251120
  Transmission Date: 20260117
  Serious: Yes (Hospitalization)
  Sender: ELI LILLY AND COMPANY
  Company Number: EU-ELI_LILLY_AND_COMPANY-DE202502008453

PATIENT
  Age: 50 Year
  Sex: Female
  Weight: 65 kg

DRUGS (2)
  1. EMGALITY [Suspect]
     Active Substance: GALCANEZUMAB-GNLM
     Indication: Product used for unknown indication
     Dosage: 120 MG, MONTHLY (1/M)
     Route: 058
     Dates: start: 20230206
  2. EMGALITY [Suspect]
     Active Substance: GALCANEZUMAB-GNLM
     Dosage: 120 MG, MONTHLY (1/M)
     Route: 058
     Dates: start: 20241216, end: 20250210

REACTIONS (7)
  - Colitis ischaemic [Recovered/Resolved]
  - Autoimmune thyroiditis [Recovering/Resolving]
  - Cholelithiasis [Recovering/Resolving]
  - Loss of consciousness [Recovering/Resolving]
  - Head injury [Recovering/Resolving]
  - Hypertension [Recovering/Resolving]
  - Therapeutic response delayed [Unknown]

NARRATIVE: CASE EVENT DATE: 20241201
